FAERS Safety Report 25663251 (Version 1)
Quarter: 2025Q3

REPORT INFORMATION
  Report Type: Spontaneous
  Country: SG (occurrence: SG)
  Receive Date: 20250811
  Receipt Date: 20250811
  Transmission Date: 20251020
  Serious: Yes (Death)
  Sender: ROCHE
  Company Number: SG-ROCHE-10000357580

PATIENT
  Age: 72 Year
  Sex: Female

DRUGS (1)
  1. KADCYLA [Suspect]
     Active Substance: ADO-TRASTUZUMAB EMTANSINE
     Indication: HER2 positive breast cancer
     Route: 042
     Dates: start: 20240603, end: 20250106

REACTIONS (3)
  - Acute respiratory distress syndrome [Fatal]
  - Pneumonia [Fatal]
  - Respiratory failure [Fatal]
